FAERS Safety Report 8007411-6 (Version None)
Quarter: 2011Q4

REPORT INFORMATION
  Report Type: 
  Country: None (occurrence: None)
  Receive Date: 20111227
  Receipt Date: 20111217
  Transmission Date: 20120403
  Serious: Yes (Hospitalization)
  Sender: FDA-Public Use
  Company Number: CA-JNJFOC-20111210223

PATIENT
  Sex: Male
  Weight: 70.3 kg

DRUGS (4)
  1. REMICADE [Suspect]
     Indication: CROHN'S DISEASE
     Route: 042
     Dates: start: 20080225
  2. IMURAN [Concomitant]
  3. FLAGYL [Concomitant]
  4. CIPROFLOXACIN [Concomitant]

REACTIONS (2)
  - FISTULA [None]
  - HAEMATEMESIS [None]
